FAERS Safety Report 16475625 (Version 1)
Quarter: 2019Q2

REPORT INFORMATION
  Report Type: Spontaneous
  Country: US (occurrence: US)
  Receive Date: 20190625
  Receipt Date: 20190625
  Transmission Date: 20190711
  Serious: Yes (Hospitalization, Other)
  Sender: FDA-Public Use
  Company Number: US-PFIZER INC-2019272318

PATIENT
  Age: 40 Year

DRUGS (1)
  1. XELJANZ [Suspect]
     Active Substance: TOFACITINIB CITRATE
     Indication: COLITIS ULCERATIVE
     Dosage: 10 MG, 2X/DAY
     Route: 048

REACTIONS (4)
  - Hepatic cirrhosis [Unknown]
  - Body mass index increased [Unknown]
  - Deep vein thrombosis [Recovered/Resolved]
  - Mobility decreased [Unknown]
